FAERS Safety Report 11993787 (Version 3)
Quarter: 2016Q2

REPORT INFORMATION
  Report Type: Report from Study
  Country: US (occurrence: US)
  Receive Date: 20160203
  Receipt Date: 20160506
  Transmission Date: 20160815
  Serious: Yes (Hospitalization, Other)
  Sender: FDA-Public Use
  Company Number: US-BIOGEN-164701

PATIENT
  Age: 60 Year
  Sex: Female
  Weight: 65.38 kg

DRUGS (11)
  1. AVONEX [Suspect]
     Active Substance: INTERFERON BETA-1A
     Route: 030
  2. AVONEX [Suspect]
     Active Substance: INTERFERON BETA-1A
     Indication: MULTIPLE SCLEROSIS
     Route: 030
     Dates: start: 19981116, end: 2003
  3. AVONEX [Suspect]
     Active Substance: INTERFERON BETA-1A
     Route: 030
  4. AVONEX [Suspect]
     Active Substance: INTERFERON BETA-1A
     Route: 030
     Dates: start: 20070307, end: 20071107
  5. AVONEX [Suspect]
     Active Substance: INTERFERON BETA-1A
     Route: 030
     Dates: start: 20080227
  6. XANAX [Concomitant]
     Active Substance: ALPRAZOLAM
     Indication: ANXIETY
     Route: 065
  7. AVONEX [Suspect]
     Active Substance: INTERFERON BETA-1A
     Route: 030
     Dates: start: 2003, end: 20061101
  8. ZOCOR [Concomitant]
     Active Substance: SIMVASTATIN
     Indication: BLOOD CHOLESTEROL INCREASED
     Route: 065
  9. PRILOSEC [Concomitant]
     Active Substance: OMEPRAZOLE MAGNESIUM
     Indication: GASTRIC DISORDER
     Route: 065
  10. DARVOCET [Concomitant]
     Active Substance: ACETAMINOPHEN\PROPOXYPHENE HYDROCHLORIDE
     Indication: BACK PAIN
     Route: 065
  11. IBUPROFEN. [Concomitant]
     Active Substance: IBUPROFEN
     Indication: BACK PAIN
     Route: 065
     Dates: start: 1996

REACTIONS (30)
  - Lung adenocarcinoma [Not Recovered/Not Resolved]
  - Coordination abnormal [Unknown]
  - Fall [Recovered/Resolved]
  - Sarcoma [Not Recovered/Not Resolved]
  - Dyspepsia [Recovered/Resolved]
  - Eczema [Unknown]
  - Pupillary disorder [Unknown]
  - Dental caries [Recovered/Resolved]
  - Reaction to preservatives [Unknown]
  - Blindness unilateral [Not Recovered/Not Resolved]
  - Depressed mood [Unknown]
  - Fatigue [Unknown]
  - Basal cell carcinoma [Not Recovered/Not Resolved]
  - Speech disorder [Not Recovered/Not Resolved]
  - Back pain [Unknown]
  - Systemic lupus erythematosus [Not Recovered/Not Resolved]
  - Hypertension [Not Recovered/Not Resolved]
  - Insomnia [Recovered/Resolved]
  - Metastases to bone [Unknown]
  - Neoplasm malignant [Unknown]
  - Peroneal nerve palsy [Not Recovered/Not Resolved]
  - Gait disturbance [Unknown]
  - Post procedural swelling [Recovered/Resolved]
  - Skin cancer [Recovered/Resolved]
  - Multiple sclerosis [Unknown]
  - Amnesia [Not Recovered/Not Resolved]
  - Cough [Not Recovered/Not Resolved]
  - Tooth disorder [Unknown]
  - Pain [Not Recovered/Not Resolved]
  - Musculoskeletal stiffness [Recovered/Resolved]

NARRATIVE: CASE EVENT DATE: 2000
